FAERS Safety Report 19788376 (Version 1)
Quarter: 2021Q3

REPORT INFORMATION
  Report Type: Spontaneous
  Country: US (occurrence: US)
  Receive Date: 20210903
  Receipt Date: 20210903
  Transmission Date: 20211014
  Serious: No
  Sender: FDA-Public Use
  Company Number: US-ASTRAZENECA-2021A703884

PATIENT
  Sex: Female

DRUGS (1)
  1. PULMICORT FLEXHALER [Suspect]
     Active Substance: BUDESONIDE
     Dosage: EXACT DOSE UNKNOWN
     Route: 055

REACTIONS (4)
  - Asthma [Unknown]
  - Incorrect dose administered by device [Unknown]
  - Product use issue [Unknown]
  - Wrong technique in device usage process [Unknown]
